FAERS Safety Report 16271503 (Version 1)
Quarter: 2019Q2

REPORT INFORMATION
  Report Type: Spontaneous
  Country: CH (occurrence: CH)
  Receive Date: 20190506
  Receipt Date: 20190506
  Transmission Date: 20190711
  Serious: Yes (Other)
  Sender: FDA-Public Use
  Company Number: CH-ABBVIE-19K-151-2769986-00

PATIENT
  Age: 56 Year
  Sex: Female

DRUGS (1)
  1. VENCLYXTO [Suspect]
     Active Substance: VENETOCLAX
     Indication: B-CELL LYMPHOMA
     Route: 048
     Dates: start: 201903, end: 201904

REACTIONS (2)
  - Off label use [Recovered/Resolved]
  - B-cell lymphoma [Unknown]

NARRATIVE: CASE EVENT DATE: 201903
